FAERS Safety Report 15016811 (Version 1)
Quarter: 2018Q2

REPORT INFORMATION
  Report Type: Spontaneous
  Country: US (occurrence: US)
  Receive Date: 20180615
  Receipt Date: 20180615
  Transmission Date: 20180711
  Serious: Yes (Other)
  Sender: FDA-Public Use
  Company Number: US-PFIZER INC-2018241469

PATIENT
  Sex: Female

DRUGS (1)
  1. LYRICA [Suspect]
     Active Substance: PREGABALIN
     Indication: NEUROPATHY PERIPHERAL
     Dosage: 75 MG, 2X/DAY

REACTIONS (6)
  - Atrial fibrillation [Unknown]
  - Nerve compression [Unknown]
  - Swelling [Unknown]
  - Pain [Unknown]
  - Product use in unapproved indication [Unknown]
  - Spinal column stenosis [Unknown]
